FAERS Safety Report 6991845-2 (Version None)
Quarter: 2010Q3

REPORT INFORMATION
  Report Type: 
  Country: None (occurrence: None)
  Receive Date: 20100917
  Receipt Date: 20100907
  Transmission Date: 20110219
  Serious: Yes (Other)
  Sender: FDA-Public Use
  Company Number: JP-PFIZER INC-2010016808

PATIENT
  Age: 63 Year
  Sex: Female

DRUGS (3)
  1. LIPITOR [Suspect]
     Indication: HYPERLIPIDAEMIA
     Dosage: 10 MG, UNKNOWN/D
     Route: 048
     Dates: end: 20100107
  2. ONE-ALPHA [Concomitant]
     Dosage: UNK
     Route: 048
     Dates: start: 20091201
  3. ARTIST [Concomitant]
     Dosage: UNK
     Route: 048
     Dates: start: 20090104

REACTIONS (2)
  - EOSINOPHILIA [None]
  - RENAL IMPAIRMENT [None]
